FAERS Safety Report 5840901-0 (Version None)
Quarter: 2008Q3

REPORT INFORMATION
  Report Type: 
  Country: None (occurrence: None)
  Receive Date: 20080731
  Receipt Date: 20080509
  Transmission Date: 20090109
  Serious: No
  Sender: FDA-Public Use
  Company Number: US200805002061

PATIENT
  Age: 49 Year
  Sex: Male
  Weight: 103.4 kg

DRUGS (6)
  1. BYETTA [Suspect]
     Indication: TYPE 2 DIABETES MELLITUS
     Dosage: 5 UG, 2/D
     Dates: start: 20050901, end: 20061001
  2. BYETTA [Suspect]
     Indication: TYPE 2 DIABETES MELLITUS
     Dosage: 5 UG, 2/D
     Dates: start: 20061001
  3. METFORMIN HCL [Concomitant]
  4. GLYBURIDE (GLEBENCLAMIDE) [Concomitant]
  5. LOTREL [Concomitant]
  6. REGLAN [Concomitant]

REACTIONS (7)
  - BLOOD GLUCOSE DECREASED [None]
  - BLOOD GLUCOSE INCREASED [None]
  - BLOOD PRESSURE INCREASED [None]
  - DRUG INEFFECTIVE [None]
  - INJECTION SITE IRRITATION [None]
  - NEUROPATHY PERIPHERAL [None]
  - WEIGHT INCREASED [None]
